FAERS Safety Report 5742045-5 (Version None)
Quarter: 2008Q2

REPORT INFORMATION
  Report Type: 
  Country: None (occurrence: None)
  Receive Date: 20080519
  Receipt Date: 20080509
  Transmission Date: 20081010
  Serious: Yes (Hospitalization, Disabling, Other)
  Sender: FDA-Public Use
  Company Number: US-MERCK-0702USA03299

PATIENT
  Age: 60 Year
  Sex: Female

DRUGS (4)
  1. FOSAMAX [Suspect]
     Indication: OSTEOPOROSIS
     Route: 048
     Dates: start: 19960125
  2. CALCIUM (UNSPECIFIED) [Concomitant]
     Route: 065
  3. PAXIL [Concomitant]
     Route: 065
  4. LORTAB [Concomitant]
     Route: 065

REACTIONS (25)
  - ABDOMINAL DISCOMFORT [None]
  - ANAEMIA [None]
  - ANXIETY [None]
  - BREAST CANCER METASTATIC [None]
  - COLONIC POLYP [None]
  - DEHYDRATION [None]
  - DEPRESSION [None]
  - FACET JOINT SYNDROME [None]
  - FEMUR FRACTURE [None]
  - HIP FRACTURE [None]
  - HYPERCHOLESTEROLAEMIA [None]
  - NAUSEA [None]
  - NEPHROLITHIASIS [None]
  - OSTEOARTHRITIS [None]
  - OSTEONECROSIS [None]
  - PAIN [None]
  - PANCYTOPENIA [None]
  - PEPTIC ULCER [None]
  - PLEURAL EFFUSION [None]
  - ROTATOR CUFF SYNDROME [None]
  - SCOLIOSIS [None]
  - SPINAL FRACTURE [None]
  - TEMPOROMANDIBULAR JOINT SYNDROME [None]
  - VULVAL CANCER [None]
  - WEIGHT DECREASED [None]
